FAERS Safety Report 8830263 (Version 5)
Quarter: 2013Q2

REPORT INFORMATION
  Report Type: Spontaneous
  Country: US (occurrence: US)
  Receive Date: 20121008
  Receipt Date: 20130429
  Transmission Date: 20140414
  Serious: Yes (Other)
  Sender: FDA-Public Use
  Company Number: US-PFIZER INC-2012244337

PATIENT
  Age: 58 Year
  Sex: Female

DRUGS (1)
  1. PREMARIN [Suspect]
     Indication: ANGIOPATHY
     Dosage: 0.625 MG, UNK
     Route: 048

REACTIONS (2)
  - Pneumonia [Unknown]
  - Drug ineffective [Unknown]
